FAERS Safety Report 8637121 (Version 3)
Quarter: 2014Q1

REPORT INFORMATION
  Report Type: Spontaneous
  Country: US (occurrence: US)
  Receive Date: 20120627
  Receipt Date: 20140131
  Transmission Date: 20141002
  Serious: Yes (Hospitalization)
  Sender: FDA-Public Use
  Company Number: US-ASTRAZENECA-2012SE35584

PATIENT
  Age: 800 Month
  Sex: Male
  Weight: 90.7 kg

DRUGS (8)
  1. NEXIUM [Suspect]
     Indication: GASTROOESOPHAGEAL REFLUX DISEASE
     Dosage: ONCE TO TWICE DAILY
     Route: 048
     Dates: start: 1990, end: 201010
  2. NEXIUM [Suspect]
     Indication: GASTROOESOPHAGEAL REFLUX DISEASE
     Route: 048
     Dates: start: 20050217
  3. OMEPRAZOLE [Suspect]
     Indication: GASTROOESOPHAGEAL REFLUX DISEASE
     Route: 048
  4. METOPROLOL [Concomitant]
     Indication: BLOOD PRESSURE ABNORMAL
  5. LOSARTAN [Concomitant]
     Indication: BLOOD PRESSURE ABNORMAL
  6. SIMVASTATIN [Concomitant]
     Indication: BLOOD CHOLESTEROL ABNORMAL
  7. BLOOD PRESSURE MEDICATION [Concomitant]
  8. LIPITOR [Concomitant]
     Dates: start: 20050317

REACTIONS (13)
  - Dermal cyst [Unknown]
  - Body height decreased [Unknown]
  - Bone density decreased [Unknown]
  - Osteoporosis [Unknown]
  - Multiple fractures [Unknown]
  - Bone loss [Unknown]
  - Angina pectoris [Unknown]
  - Calcium deficiency [Unknown]
  - Jaw fracture [Unknown]
  - Osteopenia [Unknown]
  - Wrist fracture [Unknown]
  - Hand fracture [Unknown]
  - Upper limb fracture [Unknown]
